FAERS Safety Report 16516053 (Version 6)
Quarter: 2019Q3

REPORT INFORMATION
  Report Type: Spontaneous
  Country: US (occurrence: US)
  Receive Date: 20190702
  Receipt Date: 20190903
  Transmission Date: 20191004
  Serious: Yes (Hospitalization)
  Sender: FDA-Public Use
  Company Number: US-PFIZER INC-2019277067

PATIENT
  Age: 42 Year
  Sex: Male
  Weight: 135.15 kg

DRUGS (5)
  1. LIDOCAINE AND EPINEPHRINE [Concomitant]
     Active Substance: EPINEPHRINE\LIDOCAINE HYDROCHLORIDE
     Dosage: UNK
     Dates: start: 20190314
  2. LIDOCAINE. [Concomitant]
     Active Substance: LIDOCAINE
     Dosage: UNK
  3. LIDOCAINE. [Concomitant]
     Active Substance: LIDOCAINE
     Dosage: UNK
  4. SODIUM BICARBONATE. [Suspect]
     Active Substance: SODIUM BICARBONATE
     Indication: LOCAL ANAESTHESIA
     Dosage: (FTV SDV 8.4% 1MEQ/ML 50ML)
  5. SODIUM BICARBONATE. [Suspect]
     Active Substance: SODIUM BICARBONATE
     Dosage: (2-4 ML)
     Dates: start: 20190314

REACTIONS (4)
  - Emotional disorder [Recovered/Resolved]
  - Injection site pain [Recovered/Resolved]
  - Poor quality product administered [Unknown]
  - Product contamination physical [Unknown]
